FAERS Safety Report 5951463-1 (Version None)
Quarter: 2008Q4

REPORT INFORMATION
  Report Type: 
  Country: None (occurrence: None)
  Receive Date: 20081113
  Receipt Date: 20081106
  Transmission Date: 20090506
  Serious: Yes (Other)
  Sender: FDA-Public Use
  Company Number: US-BAYER-200814053BCC

PATIENT
  Age: 54 Year
  Sex: Male
  Weight: 83 kg

DRUGS (7)
  1. ASPIRIN [Suspect]
     Indication: MYOCARDIAL INFARCTION
     Route: 048
     Dates: start: 20061101
  2. PLAVIX [Suspect]
     Indication: CORONARY ARTERY DISEASE
     Dosage: TOTAL DAILY DOSE: 75 MG  UNIT DOSE: 75 MG
     Route: 048
     Dates: start: 20061207, end: 20070907
  3. PLAVIX [Suspect]
     Dosage: TOTAL DAILY DOSE: 75 MG  UNIT DOSE: 75 MG
     Route: 048
     Dates: start: 20080825
  4. LISINOPRIL [Concomitant]
  5. METOPROLOL TARTRATE [Concomitant]
     Dosage: TOTAL DAILY DOSE: 50 MG
  6. SIMVASTATIN [Concomitant]
  7. OMEPRAZOLE [Concomitant]

REACTIONS (2)
  - BURNING SENSATION [None]
  - STENT OCCLUSION [None]
